FAERS Safety Report 9671996 (Version 1)
Quarter: 2013Q4

REPORT INFORMATION
  Report Type: Report from Study
  Country: CA (occurrence: CA)
  Receive Date: 20131106
  Receipt Date: 20131106
  Transmission Date: 20140711
  Serious: Yes (Life-Threatening)
  Sender: FDA-Public Use
  Company Number: CA-GLAXOSMITHKLINE-A0988167A

PATIENT
  Age: 38 Year
  Sex: Female
  Weight: 78 kg

DRUGS (2)
  1. GSK1120212 [Suspect]
     Indication: NEOPLASM
     Dosage: 1.5MG PER DAY
     Route: 048
     Dates: start: 20120720
  2. PEMETREXED [Suspect]
     Indication: NEOPLASM
     Dosage: 500MGM2 CYCLIC
     Route: 042
     Dates: start: 20120620

REACTIONS (1)
  - Pulmonary embolism [Recovered/Resolved with Sequelae]
